FAERS Safety Report 5199166-8 (Version None)
Quarter: 2007Q1

REPORT INFORMATION
  Report Type: 
  Country: None (occurrence: None)
  Receive Date: 20070104
  Receipt Date: 20061223
  Transmission Date: 20070707
  Serious: Yes (Other)
  Sender: FDA-Public Use
  Company Number: US-PFIZER INC-2005011658

PATIENT
  Sex: Male

DRUGS (2)
  1. VIAGRA [Suspect]
     Route: 048
  2. ZYPREXA [Concomitant]

REACTIONS (2)
  - ERECTION INCREASED [None]
  - GENITAL INJURY [None]
